FAERS Safety Report 23589154 (Version 3)
Quarter: 2024Q2

REPORT INFORMATION
  Report Type: Report from Study
  Country: US (occurrence: US)
  Receive Date: 20240303
  Receipt Date: 20240608
  Transmission Date: 20240715
  Serious: Yes (Other)
  Sender: FDA-Public Use
  Company Number: US-ABBVIE-5658994

PATIENT
  Sex: Female

DRUGS (1)
  1. VENCLEXTA [Suspect]
     Active Substance: VENETOCLAX
     Indication: 5q minus syndrome
     Dosage: TAKE 2 TABLET(S) BY MOUTH EVERY DAY FOR 7 DAYS ON, 21 DAYS OFF.
     Route: 048

REACTIONS (4)
  - Haematological malignancy [Unknown]
  - Off label use [Unknown]
  - Hypoacusis [Unknown]
  - Inappropriate schedule of product administration [Unknown]
